FAERS Safety Report 5529008-X (Version None)
Quarter: 2007Q4

REPORT INFORMATION
  Report Type: 
  Country: None (occurrence: None)
  Receive Date: 20071129
  Receipt Date: 20071122
  Transmission Date: 20080405
  Serious: Yes (Other)
  Sender: FDA-Public Use
  Company Number: PHBS2007BR19194

PATIENT
  Sex: Female
  Weight: 81 kg

DRUGS (2)
  1. FLOTAC [Suspect]
     Indication: PREOPERATIVE CARE
     Dosage: 2 TO 3 CAP/DAY
     Route: 048
  2. AMLODIPINE [Concomitant]
     Indication: HYPERTENSION
     Dosage: 1 TAB/DAY
     Route: 048

REACTIONS (4)
  - ANEURYSM [None]
  - BLOOD PRESSURE INCREASED [None]
  - CONFUSIONAL STATE [None]
  - DENGUE FEVER [None]
